FAERS Safety Report 17275278 (Version 1)
Quarter: 2020Q1

REPORT INFORMATION
  Report Type: Report from Study
  Country: CO (occurrence: CO)
  Receive Date: 20200116
  Receipt Date: 20200116
  Transmission Date: 20200409
  Serious: Yes (Life-Threatening, Hospitalization, Other)
  Sender: FDA-Public Use
  Company Number: CO-BRISTOL-MYERS SQUIBB COMPANY-BMS-2019-069268

PATIENT
  Age: 70 Year
  Sex: Male

DRUGS (1)
  1. NIVOLUMAB [Suspect]
     Active Substance: NIVOLUMAB
     Indication: RENAL CANCER
     Dosage: 310 MILLIGRAM, Q2WK
     Route: 042
     Dates: start: 20190321, end: 20191220

REACTIONS (6)
  - Nasopharyngitis [Recovering/Resolving]
  - Pyrexia [Recovering/Resolving]
  - Thrombosis [Recovering/Resolving]
  - Urinary tract infection [Unknown]
  - Blood creatinine increased [Recovering/Resolving]
  - Sepsis [Recovering/Resolving]

NARRATIVE: CASE EVENT DATE: 20190807
